FAERS Safety Report 7007606-4 (Version None)
Quarter: 2010Q3

REPORT INFORMATION
  Report Type: 
  Country: None (occurrence: None)
  Receive Date: 20100922
  Receipt Date: 20100917
  Transmission Date: 20110219
  Serious: Yes (Hospitalization)
  Sender: FDA-Public Use
  Company Number: DE-AMGEN-KDC438898

PATIENT
  Sex: Male

DRUGS (17)
  1. NEULASTA [Suspect]
     Indication: PRODUCT USED FOR UNKNOWN INDICATION
     Route: 058
     Dates: start: 20100807
  2. RITUXIMAB [Suspect]
     Route: 042
     Dates: start: 20100802
  3. CYCLOPHOSPHAMIDE [Suspect]
     Route: 042
     Dates: start: 20100804
  4. DOXORUBICIN HYDROCHLORIDE [Suspect]
     Route: 042
     Dates: start: 20100804
  5. VINCRISTINE [Suspect]
     Route: 042
     Dates: start: 20100804
  6. RAMIPRIL [Concomitant]
  7. SIMVASTATIN [Concomitant]
  8. METOPROLOL [Concomitant]
  9. XIPAMIDE [Concomitant]
  10. ACICLOVIR [Concomitant]
     Dates: start: 20100701
  11. PANTOPRAZOLE [Concomitant]
     Dates: start: 20100804
  12. TAVANIC [Concomitant]
     Dates: start: 20100804, end: 20100913
  13. PREDNISONE [Concomitant]
     Dates: start: 20100909, end: 20100910
  14. COTRIM DS [Concomitant]
     Dates: start: 20100701
  15. ALLOPURINOL [Concomitant]
     Dates: start: 20100601
  16. SODIUM BICARBONATE [Concomitant]
  17. ASPIRIN [Concomitant]

REACTIONS (2)
  - ATRIAL FLUTTER [None]
  - SUBDURAL HAEMATOMA [None]
